FAERS Safety Report 7212634-X (Version None)
Quarter: 2011Q1

REPORT INFORMATION
  Report Type: 
  Country: None (occurrence: None)
  Receive Date: 20110106
  Receipt Date: 20101229
  Transmission Date: 20110831
  Serious: Yes (Other)
  Sender: FDA-Public Use
  Company Number: US-JNJFOC-20100106067

PATIENT
  Sex: Female

DRUGS (3)
  1. ROLAIDS [Suspect]
     Indication: DYSPEPSIA
     Dosage: USING ROLAIDS FOR 20 YEARS, 6 TO 7 TABLETS A DAY
     Route: 048
  2. EXTRA STRENGTH TYLENOL [Suspect]
     Indication: ILL-DEFINED DISORDER
     Route: 048
  3. EXTRA STRENGTH TYLENOL [Suspect]
     Route: 048

REACTIONS (3)
  - MALAISE [None]
  - GALLBLADDER DISORDER [None]
  - PRODUCT QUALITY ISSUE [None]
